FAERS Safety Report 6945976-3 (Version None)
Quarter: 2010Q3

REPORT INFORMATION
  Report Type: 
  Country: None (occurrence: None)
  Receive Date: 20100827
  Receipt Date: 20100818
  Transmission Date: 20110219
  Serious: Yes (Other)
  Sender: FDA-Public Use
  Company Number: TW-JNJCH-2010019253

PATIENT
  Age: 50 Year
  Sex: Female

DRUGS (1)
  1. LISTERINE FRESHBURST [Suspect]
     Indication: DENTAL DISORDER PROPHYLAXIS
     Dosage: TEXT:THREE TIMES A DAY
     Route: 048

REACTIONS (2)
  - APPLICATION SITE BURN [None]
  - ORAL MUCOSAL EXFOLIATION [None]
